FAERS Safety Report 5843411-X (Version None)
Quarter: 2008Q3

REPORT INFORMATION
  Report Type: 
  Country: None (occurrence: None)
  Receive Date: 20080813
  Receipt Date: 20080808
  Transmission Date: 20090109
  Serious: Yes (Other)
  Sender: FDA-Public Use
  Company Number: B0529386A

PATIENT
  Age: 71 Year
  Sex: Female

DRUGS (15)
  1. REQUIP [Suspect]
     Indication: DRUG USE FOR UNKNOWN INDICATION
     Route: 048
     Dates: start: 20080101
  2. REQUIP [Suspect]
     Dosage: 3MG THREE TIMES PER DAY
     Route: 048
  3. UNKNOWN [Suspect]
     Indication: DRUG USE FOR UNKNOWN INDICATION
     Dosage: .4MG THREE TIMES PER DAY
     Route: 048
     Dates: start: 20080701, end: 20080701
  4. DOPS (JAPAN) [Concomitant]
     Route: 048
     Dates: start: 20080701
  5. MAGMITT [Concomitant]
     Route: 048
  6. CARBIDOPA + LEVODOPA [Concomitant]
     Route: 048
  7. OPALMON [Concomitant]
     Route: 048
  8. CYANOCOBALAMIN [Concomitant]
  9. KETAS [Concomitant]
     Route: 048
  10. FUROSEMIDE [Concomitant]
  11. AMARYL [Concomitant]
     Route: 048
  12. ALOSITOL [Concomitant]
     Route: 048
  13. CARVEDILOL [Concomitant]
     Route: 048
  14. ITOROL [Concomitant]
     Route: 048
  15. ATELEC [Concomitant]
     Route: 048

REACTIONS (2)
  - SOMNOLENCE [None]
  - SUDDEN ONSET OF SLEEP [None]
